FAERS Safety Report 19019598 (Version 1)
Quarter: 2021Q1

REPORT INFORMATION
  Report Type: Spontaneous
  Country: CN (occurrence: CN)
  Receive Date: 20210316
  Receipt Date: 20210316
  Transmission Date: 20210420
  Serious: Yes (Other)
  Sender: FDA-Public Use
  Company Number: CN-BAXTER-2021BAX004810

PATIENT
  Age: 66 Year
  Sex: Female
  Weight: 62.5 kg

DRUGS (5)
  1. 0.9% SODIUM CHLORIDE INJECTION [Suspect]
     Active Substance: SODIUM CHLORIDE
     Dosage: PHARMORUBICIN POWDER INJECTION 135 MG + SODIUM CHLORIDE 100ML.
     Route: 041
     Dates: start: 20201230, end: 20201230
  2. PHARMORUBICIN [Suspect]
     Active Substance: EPIRUBICIN
     Indication: BREAST CANCER FEMALE
     Dosage: PHARMORUBICIN POWDER INJECTION 135 MG + SODIUM CHLORIDE 100ML.
     Route: 041
     Dates: start: 20201230, end: 20201230
  3. JINYOULI [Concomitant]
     Active Substance: ANF-RHO
     Indication: PROPHYLAXIS
     Route: 058
     Dates: start: 20201231
  4. ENDOXAN [Suspect]
     Active Substance: CYCLOPHOSPHAMIDE
     Indication: BREAST CANCER FEMALE
     Dosage: ENDOXAN POWDER INJECTION 850 MG + SODIUM CHLORIDE 45ML
     Route: 042
     Dates: start: 20201230, end: 20201230
  5. 0.9% SODIUM CHLORIDE INJECTION [Suspect]
     Active Substance: SODIUM CHLORIDE
     Indication: MEDICATION DILUTION
     Dosage: ENDOXAN POWDER INJECTION 850 MG + SODIUM CHLORIDE 45ML
     Route: 042
     Dates: start: 20201230, end: 20201230

REACTIONS (2)
  - Agranulocytosis [Recovering/Resolving]
  - Leukopenia [Recovering/Resolving]

NARRATIVE: CASE EVENT DATE: 20210107
